FAERS Safety Report 6998126-1 (Version None)
Quarter: 2010Q3

REPORT INFORMATION
  Report Type: 
  Country: None (occurrence: None)
  Receive Date: 20100920
  Receipt Date: 20070703
  Transmission Date: 20110219
  Serious: Yes (Other)
  Sender: FDA-Public Use
  Company Number: US-ASTRAZENECA-2006UW12320

PATIENT
  Age: 571 Month
  Sex: Female
  Weight: 122.9 kg

DRUGS (13)
  1. SEROQUEL [Suspect]
     Dosage: 50 MG - 400 MG
     Route: 048
     Dates: start: 19980105
  2. SEROQUEL [Suspect]
     Route: 048
     Dates: start: 20050101
  3. ZYPREXA [Suspect]
     Dates: start: 19980924
  4. RISPERDAL [Concomitant]
  5. GLIPIZIDE [Concomitant]
     Route: 048
     Dates: start: 19990911
  6. DYAZIDE [Concomitant]
     Dosage: 37.5/25 MG
     Route: 048
     Dates: start: 19990909
  7. DILANTIN [Concomitant]
     Indication: CONVULSION
     Dates: start: 19980908
  8. PHENOBARBITAL [Concomitant]
     Dates: start: 19980923
  9. VASOTEC [Concomitant]
     Route: 048
     Dates: start: 19990909
  10. HUMULIN 70/30 [Concomitant]
     Indication: DIABETES MELLITUS
     Dosage: 50 U IN THE MORNING AND 40 IN THE NIGHT
     Dates: start: 19990615
  11. LIPITOR [Concomitant]
     Dosage: 10 MG - 40 MG
     Dates: start: 20041117
  12. GLUCOPHAGE [Concomitant]
     Dates: start: 20041117
  13. AVANDIA [Concomitant]
     Dates: start: 20041117

REACTIONS (3)
  - DIABETES MELLITUS [None]
  - DIABETES MELLITUS INADEQUATE CONTROL [None]
  - TYPE 2 DIABETES MELLITUS [None]
